FAERS Safety Report 4449952-4 (Version None)
Quarter: 2004Q3

REPORT INFORMATION
  Report Type: 
  Country: None (occurrence: None)
  Receive Date: 20040915
  Receipt Date: 20040903
  Transmission Date: 20050211
  Serious: Yes (Other)
  Sender: FDA-Public Use
  Company Number: PHEH2004US09575

PATIENT
  Age: 5 Year
  Sex: Male

DRUGS (3)
  1. FOCALIN [Suspect]
     Dosage: 2.5 UNK, BID
     Dates: start: 20040831, end: 20040831
  2. AMOXICILLIN [Concomitant]
     Indication: SINUSITIS
  3. ASTHMA MEDE [Concomitant]

REACTIONS (3)
  - DYSKINESIA [None]
  - EXTRAPYRAMIDAL DISORDER [None]
  - MENTAL IMPAIRMENT [None]
